FAERS Safety Report 12242907 (Version 3)
Quarter: 2016Q4

REPORT INFORMATION
  Report Type: Spontaneous
  Country: TR (occurrence: TR)
  Receive Date: 20160406
  Receipt Date: 20161108
  Transmission Date: 20170207
  Serious: Yes (Other)
  Sender: FDA-Public Use
  Company Number: TR-BAYER-2013-078501

PATIENT
  Age: 30 Year
  Sex: Female
  Weight: 53 kg

DRUGS (1)
  1. BETAFERON [Suspect]
     Active Substance: INTERFERON BETA-1B
     Dosage: UNK

REACTIONS (17)
  - Pain in extremity [None]
  - Localised oedema [None]
  - Abdominal wall mass [None]
  - Injection site pain [None]
  - Oedema peripheral [Recovered/Resolved]
  - Pain [Recovered/Resolved]
  - Soft tissue disorder [None]
  - Papilloma viral infection [None]
  - Hysterectomy [None]
  - Leukopenia [Recovered/Resolved]
  - Neutrophil count decreased [None]
  - Neutrophil count decreased [Recovering/Resolving]
  - Chills [Recovered/Resolved]
  - Immunosuppression [None]
  - Pyrexia [Recovered/Resolved]
  - Fat necrosis [None]
  - Seizure [None]

NARRATIVE: CASE EVENT DATE: 2015
